FAERS Safety Report 10020931 (Version 2)
Quarter: 2014Q2

REPORT INFORMATION
  Report Type: Spontaneous
  Country: IT (occurrence: None)
  Receive Date: 20140313
  Receipt Date: 20140603
  Transmission Date: 20141212
  Serious: Yes (Other)
  Sender: FDA-Public Use
  Company Number: ADR-2014-00395

PATIENT
  Age: 15 Year
  Sex: Male

DRUGS (2)
  1. BACLOFEN INTRATHECAL [Suspect]
     Indication: MUSCLE SPASTICITY
     Dates: start: 2006
  2. ZICONOTIDE INTRATHECAL [Suspect]
     Indication: PAIN

REACTIONS (4)
  - Dyskinesia [None]
  - Drug interaction [None]
  - Pain [None]
  - Muscle contracture [None]
